FAERS Safety Report 6224662-1 (Version None)
Quarter: 2009Q2

REPORT INFORMATION
  Report Type: 
  Country: None (occurrence: None)
  Receive Date: 20090612
  Receipt Date: 20090325
  Transmission Date: 20091009
  Serious: No
  Sender: FDA-Public Use
  Company Number: US-ABBOTT-09P-163-0564764-00

PATIENT
  Sex: Male

DRUGS (2)
  1. HUMIRA [Suspect]
     Indication: PSORIASIS
     Dosage: PT STOPPED INJECTION AND RESTARTED TAKING 1 WEEKLY INJECTION FOR 4 WEEKS.
  2. HUMIRA [Suspect]
     Dosage: 1 INJECTION WEEKLY X 4 WEEKS
     Route: 050

REACTIONS (1)
  - PSORIASIS [None]
